FAERS Safety Report 7455371-9 (Version None)
Quarter: 2011Q2

REPORT INFORMATION
  Report Type: 
  Country: None (occurrence: None)
  Receive Date: 20110503
  Receipt Date: 20100614
  Transmission Date: 20111010
  Serious: No
  Sender: FDA-Public Use
  Company Number: US-TYCO HEALTHCARE/MALLINCKRODT-T201001455

PATIENT

DRUGS (7)
  1. ACETAMINOPHEN AND HYDROCODONE BITARTRATE [Suspect]
     Indication: HAEMORRHOIDS
     Dosage: 5/500 TABLET
     Route: 048
     Dates: start: 20100611
  2. PLAVIX [Concomitant]
     Indication: PROPHYLAXIS
  3. COQ10 [Concomitant]
     Indication: VITAMIN SUPPLEMENTATION
  4. VITAMIN B12 NOS [Concomitant]
     Indication: VITAMIN SUPPLEMENTATION
  5. VITAMIN D [Concomitant]
     Indication: VITAMIN SUPPLEMENTATION
  6. ASPIRIN [Concomitant]
     Indication: PROPHYLAXIS
  7. SYNTHROID [Concomitant]
     Indication: THYROID DISORDER

REACTIONS (3)
  - VISION BLURRED [None]
  - NAUSEA [None]
  - HEADACHE [None]
